FAERS Safety Report 8739135 (Version 2)
Quarter: 2012Q4

REPORT INFORMATION
  Report Type: 
  Country: US (occurrence: US)
  Receive Date: 20120823
  Receipt Date: 20120912
  Transmission Date: 20130627
  Serious: Yes (Life-Threatening, Hospitalization, Disabling, Other)
  Sender: FDA-Public Use
  Company Number: US-FRI-1000037882

PATIENT
  Age: 60 None
  Sex: Female
  Weight: 60 kg

DRUGS (5)
  1. SAVELLA [Suspect]
     Indication: FIBROMYALGIA
     Dosage: 12.5 mg
     Route: 048
     Dates: start: 20111010
  2. SAVELLA [Suspect]
     Dosage: 12.5 mg BID
     Route: 048
  3. SAVELLA [Suspect]
     Dosage: 25 mg BID
     Route: 048
     Dates: end: 201203
  4. SAVELLA [Suspect]
     Indication: FIBROMYALGIA
     Dosage: 50 mg BID
     Route: 048
     Dates: start: 201203, end: 20120415
  5. TRAMADOL [Concomitant]
     Indication: PAIN
     Dosage: 50 mg prn
     Route: 048

REACTIONS (17)
  - Chest pain [Unknown]
  - Sinus tachycardia [Unknown]
  - Paraesthesia [Unknown]
  - Pain in extremity [Unknown]
  - Hypertension [Recovered/Resolved]
  - Agitation [Unknown]
  - Anxiety [Recovered/Resolved]
  - Depression [Recovered/Resolved]
  - Panic attack [Recovered/Resolved]
  - Aggression [Unknown]
  - Impulsive behaviour [Unknown]
  - Irritability [Unknown]
  - Hostility [Unknown]
  - Restlessness [Unknown]
  - Insomnia [Unknown]
  - Memory impairment [Unknown]
  - Malaise [Unknown]
